FAERS Safety Report 8338308-X (Version None)
Quarter: 2012Q2

REPORT INFORMATION
  Report Type: 
  Country: None (occurrence: None)
  Receive Date: 20120504
  Receipt Date: 20120424
  Transmission Date: 20120825
  Serious: Yes (Death, Hospitalization)
  Sender: FDA-Public Use
  Company Number: BE-ACTELION-A-CH2012-64596

PATIENT
  Sex: Female
  Weight: 60 kg

DRUGS (7)
  1. LANOXIN [Concomitant]
  2. ALDACTONE [Concomitant]
  3. REVATIO [Concomitant]
  4. LISINOPRIL [Concomitant]
  5. TRACLEER [Suspect]
     Indication: PULMONARY ARTERIAL HYPERTENSION
     Dosage: 62.5 MG, BID
     Route: 048
     Dates: start: 20080424, end: 20110414
  6. LASIX [Concomitant]
  7. ASPIRIN [Concomitant]

REACTIONS (6)
  - CARDIAC ARREST [None]
  - EISENMENGER'S SYNDROME [None]
  - THERAPEUTIC HYPOTHERMIA [None]
  - DISEASE PROGRESSION [None]
  - STATUS EPILEPTICUS [None]
  - TROPONIN INCREASED [None]
